FAERS Safety Report 20308638 (Version 1)
Quarter: 2022Q1

REPORT INFORMATION
  Report Type: Spontaneous
  Country: US (occurrence: None)
  Receive Date: 20220106
  Receipt Date: 20220106
  Transmission Date: 20220423
  Serious: Yes (Hospitalization)
  Sender: FDA-Public Use
  Company Number: None

PATIENT
  Age: 52 Year
  Sex: Male

DRUGS (1)
  1. BAMLANIVIMAB\ETESEVIMAB [Suspect]
     Active Substance: BAMLANIVIMAB\ETESEVIMAB
     Indication: COVID-19
     Route: 042
     Dates: start: 20211223, end: 20211223

REACTIONS (8)
  - Acute respiratory failure [None]
  - COVID-19 pneumonia [None]
  - Sepsis [None]
  - Asthma [None]
  - Fibrin D dimer increased [None]
  - Acute kidney injury [None]
  - Polyuria [None]
  - Blood urea increased [None]

NARRATIVE: CASE EVENT DATE: 20211224
